FAERS Safety Report 5405993-1 (Version None)
Quarter: 2007Q3

REPORT INFORMATION
  Report Type: 
  Country: None (occurrence: None)
  Receive Date: 20070802
  Receipt Date: 20070802
  Transmission Date: 20080115
  Serious: Yes (Hospitalization)
  Sender: FDA-Public Use
  Company Number: None

PATIENT
  Age: 56 Year
  Sex: Female

DRUGS (9)
  1. HYDROMORPHONE HCL [Suspect]
     Indication: PAIN
     Dosage: 540MG ONCE SQ
     Route: 058
     Dates: start: 20070111, end: 20070111
  2. CLONIDINE [Suspect]
     Indication: PAIN
     Dosage: 14MG ONCE SQ
     Route: 058
     Dates: start: 20070111, end: 20070111
  3. LANTUS [Concomitant]
  4. LISINOPRIL [Concomitant]
  5. METHADONE HCL [Concomitant]
  6. AMBIEN [Concomitant]
  7. CLOAZEPAM [Concomitant]
  8. ADVAIR DISKUS 100/50 [Concomitant]
  9. FERROUS SULFATE [Concomitant]

REACTIONS (6)
  - DEPRESSED LEVEL OF CONSCIOUSNESS [None]
  - INCORRECT ROUTE OF DRUG ADMINISTRATION [None]
  - MEDICATION ERROR [None]
  - NAUSEA [None]
  - RESPIRATORY DEPRESSION [None]
  - SOMNOLENCE [None]
